FAERS Safety Report 6343629-6 (Version None)
Quarter: 2009Q3

REPORT INFORMATION
  Report Type: 
  Country: None (occurrence: None)
  Receive Date: 20090908
  Receipt Date: 20090902
  Transmission Date: 20100115
  Serious: Yes (Other)
  Sender: FDA-Public Use
  Company Number: JP-BAYER-200911723BYL

PATIENT
  Age: 58 Year
  Sex: Female
  Weight: 48 kg

DRUGS (12)
  1. FLUDARA [Suspect]
     Indication: MYELODYSPLASTIC SYNDROME
     Dosage: AS USED: 30 MG/M2  UNIT DOSE: 50 MG
     Route: 042
     Dates: start: 20081029, end: 20081103
  2. BUSULFEX [Suspect]
     Indication: MYELODYSPLASTIC SYNDROME
     Dosage: AS USED: 3.2 MG/KG
     Route: 042
     Dates: start: 20081030, end: 20081031
  3. VALGANCICLOVIR HCL [Suspect]
  4. CYCLOSPORINE [Concomitant]
     Indication: PROPHYLAXIS AGAINST GRAFT VERSUS HOST DISEASE
     Dosage: AS USED: 3 MG/KG
     Route: 042
     Dates: start: 20081104, end: 20081125
  5. NEORAL [Concomitant]
     Indication: PROPHYLAXIS AGAINST GRAFT VERSUS HOST DISEASE
     Dosage: AS USED: 250 MG
     Route: 042
     Dates: start: 20081125
  6. METHOTREXATE [Concomitant]
     Indication: PROPHYLAXIS AGAINST GRAFT VERSUS HOST DISEASE
     Dosage: AS USED: 10 MG
     Route: 042
     Dates: start: 20081111, end: 20081111
  7. METHOTREXATE [Concomitant]
     Dosage: AS USED: 10 MG
     Route: 042
     Dates: start: 20081108, end: 20081108
  8. METHOTREXATE [Concomitant]
     Dosage: AS USED: 15 MG
     Route: 042
     Dates: start: 20081106, end: 20081106
  9. DECADRON [Concomitant]
     Indication: PROPHYLAXIS
     Dosage: AS USED: 2 MG
     Route: 042
     Dates: start: 20081104, end: 20081104
  10. PHENYTOIN [Concomitant]
     Indication: CONVULSION PROPHYLAXIS
     Dosage: AS USED: 300 MG
     Route: 048
     Dates: start: 20081029, end: 20081101
  11. CONCENTRATED RED CELLS [Concomitant]
     Indication: PACKED RED BLOOD CELL TRANSFUSION
     Route: 042
     Dates: start: 20081030, end: 20081120
  12. PLATELETS [Concomitant]
     Indication: PLATELET TRANSFUSION
     Route: 042
     Dates: start: 20081031, end: 20081120

REACTIONS (13)
  - ACUTE GRAFT VERSUS HOST DISEASE IN INTESTINE [None]
  - ACUTE GRAFT VERSUS HOST DISEASE IN SKIN [None]
  - CYSTITIS HAEMORRHAGIC [None]
  - FEBRILE NEUTROPENIA [None]
  - GRAFT VERSUS HOST DISEASE IN LUNG [None]
  - HEPATIC FUNCTION ABNORMAL [None]
  - HYPERBILIRUBINAEMIA [None]
  - HYPERURICAEMIA [None]
  - HYPOALBUMINAEMIA [None]
  - HYPOCALCAEMIA [None]
  - HYPONATRAEMIA [None]
  - MALAISE [None]
  - NAUSEA [None]
